FAERS Safety Report 7492002-6 (Version None)
Quarter: 2011Q2

REPORT INFORMATION
  Report Type: 
  Country: None (occurrence: None)
  Receive Date: 20110519
  Receipt Date: 20110516
  Transmission Date: 20111010
  Serious: Yes (Death, Hospitalization, Other)
  Sender: FDA-Public Use
  Company Number: PHHY2011JP17284

PATIENT
  Sex: Male

DRUGS (4)
  1. NEXAVAR [Concomitant]
     Indication: METASTATIC RENAL CELL CARCINOMA
     Dosage: UNK
     Dates: start: 20100101, end: 20100901
  2. SORAFENIB TOSILATE [Concomitant]
     Indication: METASTATIC RENAL CELL CARCINOMA
     Dosage: UNK
     Route: 048
     Dates: start: 20100101, end: 20100901
  3. AFINITOR [Suspect]
     Indication: METASTATIC RENAL CELL CARCINOMA
     Dosage: 10 MG
     Route: 048
     Dates: start: 20101027
  4. AFINITOR [Suspect]
     Dosage: 5 MG
     Route: 048
     Dates: end: 20110207

REACTIONS (3)
  - NEOPLASM MALIGNANT [None]
  - RENAL IMPAIRMENT [None]
  - LYMPHOCYTE COUNT DECREASED [None]
